FAERS Safety Report 6314887-9 (Version None)
Quarter: 2009Q3

REPORT INFORMATION
  Report Type: 
  Country: None (occurrence: None)
  Receive Date: 20090818
  Receipt Date: 20090818
  Transmission Date: 20100115
  Serious: No
  Sender: FDA-Public Use
  Company Number: None

PATIENT
  Age: 62 Year
  Sex: Male
  Weight: 82.55 kg

DRUGS (1)
  1. LISINOPRIL [Suspect]
     Indication: HYPERTENSION
     Dosage: 20 MG EVERY DAY PO
     Route: 048
     Dates: start: 20090625, end: 20090714

REACTIONS (4)
  - DRUG ERUPTION [None]
  - OEDEMA PERIPHERAL [None]
  - RASH PUSTULAR [None]
  - SKIN DISCOLOURATION [None]
